FAERS Safety Report 11831605 (Version 1)
Quarter: 2015Q4

REPORT INFORMATION
  Report Type: Spontaneous
  Country: US (occurrence: None)
  Receive Date: 20151211
  Receipt Date: 20151211
  Transmission Date: 20160305
  Serious: No
  Sender: FDA-Public Use
  Company Number: None

PATIENT
  Age: 65 Year
  Sex: Female

DRUGS (2)
  1. KYPROLIS [Suspect]
     Active Substance: CARFILZOMIB
     Indication: PLASMA CELL MYELOMA
     Dates: start: 20151015
  2. VELCADE [Suspect]
     Active Substance: BORTEZOMIB
     Indication: PLASMA CELL MYELOMA
     Route: 048
     Dates: start: 20140601, end: 20151015

REACTIONS (7)
  - Hyperhidrosis [None]
  - Hypersomnia [None]
  - Transfusion reaction [None]
  - No therapeutic response [None]
  - Chest discomfort [None]
  - Fatigue [None]
  - Road traffic accident [None]

NARRATIVE: CASE EVENT DATE: 20151015
